FAERS Safety Report 9222634 (Version 1)
Quarter: 2013Q1

REPORT INFORMATION
  Report Type: Spontaneous
  Country: US (occurrence: None)
  Receive Date: 20120914
  Receipt Date: 20120914
  Transmission Date: 20140127
  Serious: Yes (Other)
  Sender: FDA-Public Use
  Company Number: JPI-P-021486

PATIENT
  Age: 62 Year
  Sex: Female
  Weight: 62.14 kg

DRUGS (6)
  1. XYREM [Suspect]
     Indication: CATAPLEXY
     Route: 048
     Dates: start: 20120207, end: 2012
  2. ROSUVASTATIN CALCIUM [Concomitant]
  3. LEVOTHYROXINE SODIUM [Concomitant]
  4. CLONAZEPAM [Concomitant]
  5. ROPINIROLE [Concomitant]
  6. TOPIRAMATE [Concomitant]

REACTIONS (3)
  - Loss of consciousness [None]
  - Headache [None]
  - Somnolence [None]
